FAERS Safety Report 4554678-2 (Version None)
Quarter: 2004Q4

REPORT INFORMATION
  Report Type: 
  Country: None (occurrence: None)
  Receive Date: 20041227
  Receipt Date: 20040927
  Transmission Date: 20050328
  Serious: No
  Sender: FDA-Public Use
  Company Number: US093293

PATIENT
  Age: 72 Year
  Sex: Female
  Weight: 79 kg

DRUGS (11)
  1. SENSIPAR [Suspect]
     Indication: HYPERPARATHYROIDISM SECONDARY
     Dosage: 30 MCG, 1 IN 1 DAYS, PO
     Route: 048
     Dates: start: 20040819
  2. EPOGEN [Concomitant]
  3. ASPIRIN [Concomitant]
  4. SEVELAMER HCL [Concomitant]
  5. PHOSLO [Concomitant]
  6. OMEPRAZOLE [Concomitant]
  7. NEPHRO-VITE [Concomitant]
  8. ROSIGLITAZONE MALEATE [Concomitant]
  9. CLONIDINE [Concomitant]
  10. LOSARTAN POTASSIUM [Concomitant]
  11. FOLIC ACID [Concomitant]

REACTIONS (4)
  - FEELING ABNORMAL [None]
  - HYPOCALCAEMIA [None]
  - MUSCLE CRAMP [None]
  - NAUSEA [None]
